FAERS Safety Report 6466886-4 (Version None)
Quarter: 2009Q4

REPORT INFORMATION
  Report Type: 
  Country: None (occurrence: None)
  Receive Date: 20091202
  Receipt Date: 20091119
  Transmission Date: 20100525
  Serious: Yes (Life-Threatening, Hospitalization, Other)
  Sender: FDA-Public Use
  Company Number: JP-PFIZER INC-2009281396

PATIENT
  Age: 55 Year
  Sex: Male
  Weight: 60 kg

DRUGS (5)
  1. ZYVOX [Suspect]
     Indication: STAPHYLOCOCCAL INFECTION
     Dosage: 600 MG, 2X/DAY
     Route: 042
     Dates: start: 20060712, end: 20060717
  2. ZYVOX [Suspect]
     Indication: PSEUDOMONAS INFECTION
  3. FINIBAX [Suspect]
     Indication: BACTERIAL DISEASE CARRIER
     Dosage: FREQUENCY: 2X/DAY,
     Route: 042
     Dates: start: 20060712, end: 20060717
  4. TARGOCID [Concomitant]
     Indication: WOUND INFECTION STAPHYLOCOCCAL
     Dosage: 400 MG, 1X/DAY
     Route: 042
     Dates: start: 20060624, end: 20060711
  5. MEROPEN [Concomitant]
     Route: 042
     Dates: start: 20060620, end: 20060704

REACTIONS (3)
  - BONE MARROW FAILURE [None]
  - SEPTIC SHOCK [None]
  - WHITE BLOOD CELL COUNT DECREASED [None]
